FAERS Safety Report 8718013 (Version 5)
Quarter: 2015Q1

REPORT INFORMATION
  Report Type: Report from Study
  Country: BR (occurrence: BR)
  Receive Date: 20120810
  Receipt Date: 20150108
  Transmission Date: 20150721
  Serious: Yes (Other)
  Sender: FDA-Public Use
  Company Number: BR-ROCHE-717229

PATIENT
  Age: 49 Year
  Sex: Female
  Weight: 70 kg

DRUGS (18)
  1. VALERIANE [Concomitant]
     Active Substance: VALERIAN
     Indication: SEDATIVE THERAPY
  2. METHIONINE [Concomitant]
     Active Substance: METHIONINE
     Route: 065
  3. SIMVASTATIN. [Concomitant]
     Active Substance: SIMVASTATIN
     Route: 065
  4. SERTRALINE [Concomitant]
     Active Substance: SERTRALINE HYDROCHLORIDE
  5. BIOTIN [Concomitant]
     Active Substance: BIOTIN
  6. FLUOXETINE [Concomitant]
     Active Substance: FLUOXETINE\FLUOXETINE HYDROCHLORIDE
     Route: 065
  7. SILIMARINA [Concomitant]
     Route: 065
  8. COLLAGEN [Concomitant]
     Active Substance: COLLAGEN
     Indication: UNEVALUABLE EVENT
  9. MABTHERA [Suspect]
     Active Substance: RITUXIMAB
     Indication: RHEUMATOID ARTHRITIS
     Dosage: IN JUL/2014, THE PATIENT RECEIVED THE MOST RECENT INFUSION?PATIENT RECEIVED 9 CYCLES OF MABTHERA: 1
     Route: 042
     Dates: start: 20100601, end: 20120624
  10. RISEDROSS [Concomitant]
     Active Substance: RISEDRONATE SODIUM
     Route: 065
  11. MELILOTUS OFFICINALIS [Concomitant]
  12. IBUPROFEN. [Concomitant]
     Active Substance: IBUPROFEN
     Route: 065
  13. ETHINYL ESTRADIOL [Concomitant]
     Active Substance: ETHINYL ESTRADIOL
  14. CIPROFIBRATE [Concomitant]
     Active Substance: CIPROFIBRATE
  15. GELATIN [Concomitant]
     Active Substance: GELATIN
     Indication: UNEVALUABLE EVENT
  16. DIPYRONE [Concomitant]
     Active Substance: DIPYRONE
  17. CAFFEINE. [Concomitant]
     Active Substance: CAFFEINE
     Indication: PAIN
  18. GESTODENE [Concomitant]
     Active Substance: GESTODENE
     Indication: CONTRACEPTION
     Dosage: DRUG NAME REPORTED AS GINERA
     Route: 065

REACTIONS (18)
  - Somnolence [Recovered/Resolved]
  - Gingival pruritus [Recovered/Resolved]
  - Food intolerance [Not Recovered/Not Resolved]
  - Agitation [Recovered/Resolved]
  - Hypersensitivity [Unknown]
  - Tremor [Recovered/Resolved]
  - Varicose vein [Unknown]
  - Depression [Recovered/Resolved]
  - Urticaria [Recovered/Resolved]
  - Skin discolouration [Recovered/Resolved]
  - Lip discolouration [Recovered/Resolved]
  - Gingival pain [Recovered/Resolved]
  - Gastric disorder [Not Recovered/Not Resolved]
  - Nasal discomfort [Recovered/Resolved]
  - Influenza [Unknown]
  - Cough [Unknown]
  - Throat irritation [Recovered/Resolved]
  - Malaise [Recovered/Resolved]

NARRATIVE: CASE EVENT DATE: 20100610
